FAERS Safety Report 18431132 (Version 1)
Quarter: 2020Q4

REPORT INFORMATION
  Report Type: Spontaneous
  Country: US (occurrence: US)
  Receive Date: 20201027
  Receipt Date: 20201027
  Transmission Date: 20210114
  Serious: Yes (Hospitalization)
  Sender: FDA-Public Use
  Company Number: None

PATIENT
  Sex: Male

DRUGS (1)
  1. REBIF REBIDOSE [Suspect]
     Active Substance: INTERFERON BETA-1A
     Indication: MULTIPLE SCLEROSIS
     Dosage: ?          OTHER STRENGTH: 44MCG/0.5ML;OTHER DOSE:44MCG/0.5ML;?
     Route: 058

REACTIONS (2)
  - Gastric haemorrhage [None]
  - Fall [None]
